FAERS Safety Report 10042623 (Version 1)
Quarter: 2014Q1

REPORT INFORMATION
  Report Type: Spontaneous
  Country: US (occurrence: None)
  Receive Date: 20140325
  Receipt Date: 20140325
  Transmission Date: 20141002
  Serious: No
  Sender: FDA-Public Use
  Company Number: 2014-00046

PATIENT
  Age: 74 Year
  Sex: Female
  Weight: 86.18 kg

DRUGS (2)
  1. UNSPECIFIED ZICAM PRODUCT [Suspect]
     Dosage: NASAL, 2 DOSES PER NOSTRIL
     Route: 045
  2. PREMPRO [Concomitant]

REACTIONS (4)
  - Ageusia [None]
  - Anosmia [None]
  - Drug ineffective [None]
  - Product quality issue [None]
